FAERS Safety Report 17873580 (Version 1)
Quarter: 2020Q2

REPORT INFORMATION
  Report Type: Spontaneous
  Country: US (occurrence: US)
  Receive Date: 20200609
  Receipt Date: 20200609
  Transmission Date: 20200714
  Serious: No
  Sender: FDA-Public Use
  Company Number: NVSC2020US160045

PATIENT
  Age: 75 Year

DRUGS (1)
  1. VOLTAREN [Suspect]
     Active Substance: DICLOFENAC SODIUM
     Indication: ARTHRITIS
     Dosage: UNK (3 TO 4 DAYS)
     Route: 065
     Dates: start: 202005, end: 20200530

REACTIONS (2)
  - Back pain [Unknown]
  - Sciatica [Unknown]
